FAERS Safety Report 8775436 (Version 1)
Quarter: 2012Q4

REPORT INFORMATION
  Report Type: 
  Country: SE (occurrence: SE)
  Receive Date: 20120910
  Receipt Date: 20120910
  Transmission Date: 20130627
  Serious: Yes (Hospitalization)
  Sender: FDA-Public Use
  Company Number: SE-PFIZER INC-2012217226

PATIENT
  Age: 77 Year
  Sex: Male
  Weight: 84.5 kg

DRUGS (13)
  1. GENOTROPIN [Suspect]
     Indication: GROWTH HORMONE DEFICIENCY
     Dosage: 0.3 mg, 7/wk
     Route: 058
     Dates: start: 20060505
  2. PRAVIDEL [Concomitant]
     Indication: GALACTOSAEMIA
     Dosage: UNK
     Dates: start: 19810101
  3. CORTISONE ACETATE [Concomitant]
     Indication: BLOOD CORTICOTROPHIN DECREASED
     Dosage: UNK
     Dates: start: 19900801
  4. VIBRAMYCIN [Concomitant]
     Indication: BRONCHITIS
     Dosage: UNK
     Dates: start: 19960304
  5. CORTAL [Concomitant]
     Indication: BLOOD CORTICOTROPHIN DECREASED
     Dosage: UNK
     Dates: start: 20011206
  6. DICLOFENAC [Concomitant]
     Indication: ARTHRALGIA
     Dosage: UNK
     Dates: start: 20021001
  7. PROSCAR [Concomitant]
     Indication: PROSTATIC DISORDER
     Dosage: UNK
     Dates: start: 20040201
  8. HYDROCORTONE [Concomitant]
     Indication: BLOOD CORTICOTROPHIN DECREASED
     Dosage: UNK
     Dates: start: 20050202
  9. NEBIDO [Concomitant]
     Indication: BLOOD LUTEINISING HORMONE DECREASED
     Dosage: UNK
     Dates: start: 20060201
  10. NEBIDO [Concomitant]
     Indication: BLOOD FOLLICLE STIMULATING HORMONE DECREASED
  11. NEBIDO [Concomitant]
     Indication: HYPOGONADISM MALE
  12. LEVOTHYROXINE [Concomitant]
     Indication: BLOOD THYROID STIMULATING HORMONE DECREASED
     Dosage: UNK
     Dates: start: 20060525
  13. LEVOTHYROXINE [Concomitant]
     Indication: PRIMARY HYPOTHYROIDISM

REACTIONS (1)
  - Ulcer haemorrhage [Unknown]
